FAERS Safety Report 9155368 (Version 1)
Quarter: 2013Q1

REPORT INFORMATION
  Report Type: Spontaneous
  Country: JP (occurrence: JP)
  Receive Date: 20130311
  Receipt Date: 20130311
  Transmission Date: 20140127
  Serious: Yes (Other)
  Sender: FDA-Public Use
  Company Number: JP-WATSON-2013-03696

PATIENT
  Sex: Male

DRUGS (4)
  1. LAMOTRIGINE (UNKNOWN) [Suspect]
     Indication: LENNOX-GASTAUT SYNDROME
     Dosage: UNK, UNKNOWN
     Route: 065
  2. VALPROIC ACID [Concomitant]
     Indication: LENNOX-GASTAUT SYNDROME
     Dosage: 700 MG, UNKNOWN
     Route: 065
  3. ZONISAMIDE [Concomitant]
     Indication: LENNOX-GASTAUT SYNDROME
     Dosage: 200 MG, UNKNOWN
     Route: 065
  4. CLOBAZAM [Concomitant]
     Indication: LENNOX-GASTAUT SYNDROME
     Dosage: 6 MG, UNKNOWN
     Route: 065

REACTIONS (2)
  - Circadian rhythm sleep disorder [Unknown]
  - Somnolence [Unknown]
